FAERS Safety Report 9733483 (Version 1)
Quarter: 2013Q4

REPORT INFORMATION
  Report Type: Spontaneous
  Country: NL (occurrence: NL)
  Receive Date: 20131205
  Receipt Date: 20131205
  Transmission Date: 20140711
  Serious: Yes (Life-Threatening, Disabling, Other)
  Sender: FDA-Public Use
  Company Number: NL-009507513-1312NLD000169

PATIENT
  Age: 26 Year
  Sex: Female

DRUGS (1)
  1. NUVARING [Suspect]
     Route: 067

REACTIONS (6)
  - Embolism [Recovered/Resolved with Sequelae]
  - Cardiac failure acute [Not Recovered/Not Resolved]
  - Antiphospholipid antibodies positive [Unknown]
  - Dyspnoea [Unknown]
  - Painful respiration [Not Recovered/Not Resolved]
  - Fatigue [Not Recovered/Not Resolved]
